FAERS Safety Report 10500160 (Version 1)
Quarter: 2014Q4

REPORT INFORMATION
  Report Type: Spontaneous
  Country: US (occurrence: US)
  Receive Date: 20141006
  Receipt Date: 20141006
  Transmission Date: 20150528
  Serious: No
  Sender: FDA-Public Use
  Company Number: US-AMGEN INC.-USASP2014049537

PATIENT
  Age: 56 Year
  Sex: Female
  Weight: 56.69 kg

DRUGS (2)
  1. ZITHROMAX [Concomitant]
     Active Substance: AZITHROMYCIN DIHYDRATE
     Indication: NASAL DISORDER
  2. PROLIA [Suspect]
     Active Substance: DENOSUMAB
     Indication: OSTEOPOROSIS POSTMENOPAUSAL
     Dosage: UNK UNK, Q6MO
     Route: 065
     Dates: start: 20140609

REACTIONS (8)
  - Injection site pain [Recovered/Resolved]
  - Hypertonic bladder [Unknown]
  - Insomnia [Unknown]
  - Dysuria [Unknown]
  - Weight increased [Unknown]
  - Blood urine present [Unknown]
  - Pain in extremity [Unknown]
  - Myalgia [Unknown]

NARRATIVE: CASE EVENT DATE: 20140609
